FAERS Safety Report 10543340 (Version 2)
Quarter: 2020Q3

REPORT INFORMATION
  Report Type: Spontaneous
  Country: IT (occurrence: IT)
  Receive Date: 20141027
  Receipt Date: 20141027
  Transmission Date: 20201104
  Serious: Yes (Hospitalization)
  Sender: FDA-Public Use
  Company Number: IT-ROCHE-1473618

PATIENT
  Age: 68 Year
  Sex: Female

DRUGS (6)
  1. IBANDRONIC ACID. [Suspect]
     Active Substance: IBANDRONIC ACID
     Indication: OSTEOPOROSIS
     Route: 048
     Dates: start: 2005
  2. VITAMIN D3 [Concomitant]
     Active Substance: CHOLECALCIFEROL
     Route: 065
     Dates: start: 1993
  3. LEFLUNOMIDE. [Concomitant]
     Active Substance: LEFLUNOMIDE
     Route: 065
     Dates: start: 1993
  4. IBANDRONIC ACID. [Suspect]
     Active Substance: IBANDRONIC ACID
     Indication: SPINAL FRACTURE
  5. METHOTREXATE. [Concomitant]
     Active Substance: METHOTREXATE
     Route: 065
     Dates: start: 1993
  6. PREDNISONE. [Concomitant]
     Active Substance: PREDNISONE
     Route: 065
     Dates: start: 1993

REACTIONS (9)
  - Abscess jaw [Recovered/Resolved]
  - Osteonecrosis of jaw [Recovered/Resolved]
  - Headache [Unknown]
  - Pyrexia [Unknown]
  - Pain [Unknown]
  - Actinomycosis [Unknown]
  - Dyskinesia [Unknown]
  - Trismus [Unknown]
  - Malaise [Unknown]

NARRATIVE: CASE EVENT DATE: 201303
